FAERS Safety Report 6917023-0 (Version None)
Quarter: 2010Q3

REPORT INFORMATION
  Report Type: 
  Country: None (occurrence: None)
  Receive Date: 20100809
  Receipt Date: 20100809
  Transmission Date: 20110219
  Serious: No
  Sender: FDA-Public Use
  Company Number: None

PATIENT
  Age: 50 Year
  Sex: Male
  Weight: 95.2554 kg

DRUGS (1)
  1. CIPRODEX [Suspect]
     Indication: EAR INFECTION
     Dosage: 3 DROPS 2 DAILY OTIC
     Dates: start: 20100729, end: 20100806

REACTIONS (1)
  - TINNITUS [None]
